FAERS Safety Report 16178224 (Version 3)
Quarter: 2023Q1

REPORT INFORMATION
  Report Type: Spontaneous
  Country: CA (occurrence: CA)
  Receive Date: 20190410
  Receipt Date: 20230209
  Transmission Date: 20230417
  Serious: Yes (Hospitalization)
  Sender: FDA-Public Use
  Company Number: CA-002147023-PHHY2019CA074869

PATIENT
  Age: 65 Year
  Sex: Female

DRUGS (7)
  1. XOLAIR [Suspect]
     Active Substance: OMALIZUMAB
     Indication: Asthma
     Route: 058
  2. XOLAIR [Suspect]
     Active Substance: OMALIZUMAB
     Route: 058
  3. MORPHINE SULFATE [Suspect]
     Active Substance: MORPHINE SULFATE
     Indication: Product used for unknown indication
     Route: 048
  4. MORPHINE SULFATE [Suspect]
     Active Substance: MORPHINE SULFATE
     Indication: Abdominal pain
  5. HYDROCORTISONE SODIUM SUCCINATE [Suspect]
     Active Substance: HYDROCORTISONE SODIUM SUCCINATE
     Indication: Adrenal insufficiency
     Route: 065
  6. ADVAIR HFA [Concomitant]
     Active Substance: FLUTICASONE PROPIONATE\SALMETEROL XINAFOATE
     Indication: Product used for unknown indication
     Route: 065
  7. VENTOLIN [Concomitant]
     Active Substance: ALBUTEROL SULFATE
     Indication: Product used for unknown indication
     Dosage: UNK
     Route: 065

REACTIONS (28)
  - Adrenal insufficiency [Recovered/Resolved]
  - Basophil count increased [Recovered/Resolved]
  - Bronchitis [Recovered/Resolved]
  - Dyspnoea [Recovered/Resolved]
  - Epiglottitis [Recovered/Resolved]
  - Lung disorder [Recovered/Resolved]
  - Ovarian cyst [Recovered/Resolved]
  - Pain [Recovered/Resolved]
  - Parkinson^s disease [Recovered/Resolved]
  - Pneumonia [Recovered/Resolved]
  - Productive cough [Recovered/Resolved]
  - Seasonal allergy [Recovered/Resolved]
  - Sepsis [Recovered/Resolved]
  - Sinus pain [Recovered/Resolved]
  - Tremor [Unknown]
  - Weight decreased [Recovered/Resolved]
  - Thyroid disorder [Recovered/Resolved]
  - White blood cell count decreased [Recovered/Resolved]
  - Weight increased [Recovered/Resolved]
  - Pyrexia [Recovered/Resolved]
  - Cough [Recovered/Resolved]
  - Abdominal pain [Recovered/Resolved]
  - Cellulitis [Recovered/Resolved]
  - Oxygen saturation decreased [Recovered/Resolved]
  - Sinusitis [Recovered/Resolved]
  - Carpal tunnel syndrome [Recovered/Resolved]
  - Injury [Recovered/Resolved]
  - Inappropriate schedule of product administration [Unknown]
